FAERS Safety Report 19180825 (Version 2)
Quarter: 2021Q2

REPORT INFORMATION
  Report Type: Spontaneous
  Country: BR (occurrence: BR)
  Receive Date: 20210426
  Receipt Date: 20210510
  Transmission Date: 20210717
  Serious: Yes (Other)
  Sender: FDA-Public Use
  Company Number: BR-PFIZER INC-2021400614

PATIENT
  Age: 84 Year
  Sex: Male

DRUGS (11)
  1. FORTAZ [Concomitant]
     Active Substance: CEFTAZIDIME SODIUM
     Dosage: 2 G, 2X/DAY
     Route: 042
     Dates: start: 20190301, end: 20190302
  2. APRESOLINA [Concomitant]
     Active Substance: HYDRALAZINE HYDROCHLORIDE
     Dosage: 12.5 MG, 2X/DAY
     Route: 048
     Dates: start: 20190224, end: 20190318
  3. DIPYRONE [Concomitant]
     Active Substance: DIPYRONE
     Dosage: 1 G, 4X/DAY
     Route: 048
     Dates: start: 20190316, end: 20190318
  4. TRAMADOL. [Concomitant]
     Active Substance: TRAMADOL
     Dosage: 100 MG, SINGLE
     Route: 042
     Dates: start: 20190301, end: 20190301
  5. ELIQUIS [Concomitant]
     Active Substance: APIXABAN
     Dosage: 5 MG, 2X/DAY
     Route: 048
     Dates: start: 20190225, end: 20190318
  6. MORPHINE [Concomitant]
     Active Substance: MORPHINE
     Dosage: 2 MG, AS NEEDED
     Route: 042
     Dates: start: 20190225, end: 20190301
  7. FUROSEMIDE. [Concomitant]
     Active Substance: FUROSEMIDE
     Dosage: 40 MG, 1X/DAY
     Route: 048
     Dates: start: 20190220, end: 20190318
  8. MONOCORDIL [Concomitant]
     Active Substance: ISOSORBIDE MONONITRATE
     Dosage: 20 MG, 2X/DAY
     Route: 048
     Dates: start: 20190216, end: 20190306
  9. SEROQUEL [Concomitant]
     Active Substance: QUETIAPINE FUMARATE
     Dosage: 25 MG, 1X/DAY
     Route: 048
     Dates: start: 20190219, end: 20190304
  10. ZYVOX [Suspect]
     Active Substance: LINEZOLID
     Indication: SOFT TISSUE INFECTION
     Dosage: 600 MG, 2X/DAY (EVERY 12 HOURS)
     Route: 042
     Dates: start: 20190226, end: 20190304
  11. PANTOPRAZOLE [Concomitant]
     Active Substance: PANTOPRAZOLE
     Dosage: 40 MG, 1X/DAY
     Route: 048
     Dates: start: 20190216, end: 20190312

REACTIONS (1)
  - Hyponatraemia [Recovered/Resolved]

NARRATIVE: CASE EVENT DATE: 20190301
